FAERS Safety Report 6199181-1 (Version None)
Quarter: 2009Q2

REPORT INFORMATION
  Report Type: 
  Country: None (occurrence: None)
  Receive Date: 20090522
  Receipt Date: 20090407
  Transmission Date: 20091009
  Serious: No
  Sender: FDA-Public Use
  Company Number: A0777565A

PATIENT
  Age: 6 Year
  Sex: Female

DRUGS (2)
  1. VERAMYST [Suspect]
     Route: 050
  2. NO CONCURRENT MEDICATION [Concomitant]

REACTIONS (2)
  - ACCIDENTAL EXPOSURE [None]
  - NO ADVERSE EVENT [None]
